FAERS Safety Report 8211745-X (Version None)
Quarter: 2012Q1

REPORT INFORMATION
  Report Type: 
  Country: None (occurrence: None)
  Receive Date: 20120315
  Receipt Date: 20120306
  Transmission Date: 20120608
  Serious: Yes (Hospitalization, Other)
  Sender: FDA-Public Use
  Company Number: GB-JNJFOC-20120213611

PATIENT
  Age: 48 Year
  Sex: Male

DRUGS (8)
  1. RISPERIDONE [Suspect]
     Indication: PRODUCT USED FOR UNKNOWN INDICATION
     Route: 048
     Dates: start: 20100608, end: 20120127
  2. SIMVASTATIN [Concomitant]
     Indication: BLOOD CHOLESTEROL INCREASED
     Route: 048
     Dates: start: 20100608
  3. CLOZARIL [Suspect]
     Route: 048
     Dates: start: 20070220
  4. CLOZARIL [Suspect]
     Indication: SCHIZOPHRENIA
     Route: 048
     Dates: start: 20101110, end: 20120118
  5. PIRENZEPINE [Suspect]
     Indication: SALIVARY HYPERSECRETION
     Route: 048
     Dates: start: 20100608, end: 20120120
  6. VALPROIC ACID [Concomitant]
     Indication: AFFECTIVE DISORDER
     Route: 048
     Dates: start: 20100608
  7. OLANZAPINE [Concomitant]
     Indication: SCHIZOPHRENIA
     Route: 048
     Dates: start: 20120127
  8. CITALOPRAM HYDROBROMIDE [Concomitant]
     Indication: DEPRESSED MOOD
     Route: 048
     Dates: start: 20101008

REACTIONS (5)
  - NEUTROPENIA [None]
  - PSYCHOTIC DISORDER [None]
  - HEPATITIS C VIRUS TEST POSITIVE [None]
  - SALIVARY HYPERSECRETION [None]
  - THROMBOCYTOPENIA [None]
